FAERS Safety Report 7273840 (Version 9)
Quarter: 2012Q4

REPORT INFORMATION
  Report Type: 
  Country: CA (occurrence: CA)
  Receive Date: 20100209
  Receipt Date: 20121106
  Transmission Date: 20130627
  Serious: Yes (Other)
  Sender: FDA-Public Use
  Company Number: PHHY2010CA04335

PATIENT
  Sex: Male

DRUGS (4)
  1. SANDOSTATIN LAR [Suspect]
     Indication: ACROMEGALY
     Dosage: 30 mg, QMO
     Route: 030
     Dates: start: 20080526
  2. SANDOSTATIN LAR [Suspect]
     Dosage: 30 mg, BIW
     Route: 030
  3. SANDOSTATIN LAR [Suspect]
     Dosage: 30 mg, TIW
     Route: 030
  4. SANDOSTATIN LAR [Suspect]
     Dosage: 30 mg, QMO
     Route: 030

REACTIONS (7)
  - Nasal sinus cancer [Unknown]
  - Nasal congestion [Unknown]
  - Headache [Not Recovered/Not Resolved]
  - Hypoaesthesia [Unknown]
  - Syncope [Unknown]
  - Flushing [Unknown]
  - Fatigue [Unknown]
